FAERS Safety Report 21665086 (Version 2)
Quarter: 2022Q4

REPORT INFORMATION
  Report Type: Report from Study
  Country: US (occurrence: US)
  Receive Date: 20221130
  Receipt Date: 20221202
  Transmission Date: 20230112
  Serious: Yes (Hospitalization)
  Sender: FDA-Public Use
  Company Number: US-ABBVIE-4208961

PATIENT
  Sex: Female

DRUGS (3)
  1. SKYRIZI [Suspect]
     Active Substance: RISANKIZUMAB-RZAA
     Indication: Psoriasis
     Dosage: 150 MG, FRIST AND LAST ADMINISTRATION DATE 2022
     Route: 058
  2. SKYRIZI [Suspect]
     Active Substance: RISANKIZUMAB-RZAA
     Dosage: WEEK 0?150 MG
     Route: 058
     Dates: start: 20211222, end: 20211222
  3. SKYRIZI [Suspect]
     Active Substance: RISANKIZUMAB-RZAA
     Dosage: WEEK 4, 150 MG, FRIST AND LAST ADMINISTRATION DATE 2022
     Route: 058

REACTIONS (6)
  - Rectal haemorrhage [Unknown]
  - Illness [Unknown]
  - General physical health deterioration [Not Recovered/Not Resolved]
  - Cough [Unknown]
  - Liver disorder [Unknown]
  - Biliary catheter insertion [Unknown]

NARRATIVE: CASE EVENT DATE: 20220101
